FAERS Safety Report 24375960 (Version 1)
Quarter: 2024Q3

REPORT INFORMATION
  Report Type: Spontaneous
  Country: US (occurrence: US)
  Receive Date: 20240928
  Receipt Date: 20240928
  Transmission Date: 20241016
  Serious: Yes (Other)
  Sender: AMGEN
  Company Number: US-AMGEN-USASP2024188798

PATIENT
  Age: 79 Year
  Sex: Female

DRUGS (15)
  1. PREDNISONE [Suspect]
     Active Substance: PREDNISONE
     Indication: Pachymeningitis
     Dosage: 10 MILLIGRAM, QD (5 DAYS)
     Route: 065
     Dates: start: 2020
  2. PREDNISONE [Suspect]
     Active Substance: PREDNISONE
     Indication: Headache
     Dosage: 60 MILLIGRAM (TAPER)
     Route: 065
  3. PREDNISONE [Suspect]
     Active Substance: PREDNISONE
     Indication: Granulomatosis with polyangiitis
  4. GABAPENTIN [Concomitant]
     Active Substance: GABAPENTIN
     Indication: Pachymeningitis
     Dosage: UNK
  5. GABAPENTIN [Concomitant]
     Active Substance: GABAPENTIN
     Indication: Headache
  6. GABAPENTIN [Concomitant]
     Active Substance: GABAPENTIN
     Indication: Granulomatosis with polyangiitis
  7. BUTALBITAL [Concomitant]
     Active Substance: BUTALBITAL
     Indication: Granulomatosis with polyangiitis
     Dosage: UNK
  8. BUTALBITAL [Concomitant]
     Active Substance: BUTALBITAL
     Indication: Pachymeningitis
  9. BUTALBITAL [Concomitant]
     Active Substance: BUTALBITAL
     Indication: Headache
  10. ACETAMINOPHEN [Concomitant]
     Active Substance: ACETAMINOPHEN
     Indication: Granulomatosis with polyangiitis
     Dosage: UNK
  11. ACETAMINOPHEN [Concomitant]
     Active Substance: ACETAMINOPHEN
     Indication: Pachymeningitis
  12. ACETAMINOPHEN [Concomitant]
     Active Substance: ACETAMINOPHEN
     Indication: Headache
  13. CAFFEINE [Concomitant]
     Active Substance: CAFFEINE
     Indication: Granulomatosis with polyangiitis
     Dosage: UNK
  14. CAFFEINE [Concomitant]
     Active Substance: CAFFEINE
     Indication: Pachymeningitis
  15. CAFFEINE [Concomitant]
     Active Substance: CAFFEINE
     Indication: Headache

REACTIONS (6)
  - Subdural haematoma [Unknown]
  - Granulomatosis with polyangiitis [Unknown]
  - Drug ineffective for unapproved indication [Unknown]
  - Mycobacterium tuberculosis complex test positive [Unknown]
  - Blood immunoglobulin G increased [Unknown]
  - Off label use [Unknown]
